FAERS Safety Report 10785182 (Version 1)
Quarter: 2020Q3

REPORT INFORMATION
  Report Type: Report from Study
  Country: US (occurrence: US)
  Receive Date: 20150211
  Receipt Date: 20150211
  Transmission Date: 20201104
  Serious: Yes (Other)
  Sender: FDA-Public Use
  Company Number: US-JNJFOC-20140923940

PATIENT
  Age: 40 Year
  Sex: Female
  Weight: 55.6 kg

DRUGS (3)
  1. USTEKINUMAB [Suspect]
     Active Substance: USTEKINUMAB
     Route: 042
  2. NAPROXEN. [Concomitant]
     Active Substance: NAPROXEN
     Route: 048
     Dates: start: 20140919, end: 20140919
  3. USTEKINUMAB [Suspect]
     Active Substance: USTEKINUMAB
     Indication: DRUG LEVEL
     Route: 042
     Dates: start: 20140630, end: 20140630

REACTIONS (2)
  - Exposure during pregnancy [Unknown]
  - Abortion [Recovered/Resolved]

NARRATIVE: CASE EVENT DATE: 20140924
